FAERS Safety Report 9090024 (Version 1)
Quarter: 2013Q1

REPORT INFORMATION
  Report Type: Spontaneous
  Country: US (occurrence: US)
  Receive Date: 20130201
  Receipt Date: 20130201
  Transmission Date: 20140127
  Serious: No
  Sender: FDA-Public Use
  Company Number: US-009507513-1301USA014259

PATIENT
  Age: 68 Year
  Sex: Female

DRUGS (1)
  1. JANUVIA [Suspect]
     Indication: TYPE 2 DIABETES MELLITUS
     Dosage: HALF TABLET DAILY
     Route: 048
     Dates: start: 20130122

REACTIONS (2)
  - Hallucination, auditory [Not Recovered/Not Resolved]
  - Wrong technique in drug usage process [Unknown]
